FAERS Safety Report 9237901 (Version 2)
Quarter: 2013Q2

REPORT INFORMATION
  Report Type: Spontaneous
  Country: US (occurrence: US)
  Receive Date: 20130418
  Receipt Date: 20130527
  Transmission Date: 20140414
  Serious: No
  Sender: FDA-Public Use
  Company Number: US-009507513-1304USA007246

PATIENT
  Sex: Male

DRUGS (1)
  1. AZASITE [Suspect]
     Dosage: ONE DROP IN EACH EYE, Q6H
     Route: 047
     Dates: start: 20130221

REACTIONS (4)
  - Prescribed overdose [Unknown]
  - Incorrect drug administration duration [Unknown]
  - No adverse event [Unknown]
  - Off label use [Unknown]
